FAERS Safety Report 7582815-4 (Version None)
Quarter: 2011Q2

REPORT INFORMATION
  Report Type: 
  Country: None (occurrence: None)
  Receive Date: 20110627
  Receipt Date: 20110627
  Transmission Date: 20111010
  Serious: No
  Sender: FDA-Public Use
  Company Number: None

PATIENT
  Sex: Female
  Weight: 72.5755 kg

DRUGS (1)
  1. RECLAST [Suspect]
     Indication: BONE LOSS

REACTIONS (11)
  - DIZZINESS [None]
  - OEDEMA PERIPHERAL [None]
  - DISTURBANCE IN ATTENTION [None]
  - BONE PAIN [None]
  - FATIGUE [None]
  - AMNESIA [None]
  - HEADACHE [None]
  - PYREXIA [None]
  - DYSPNOEA [None]
  - NAUSEA [None]
  - ARTHRALGIA [None]
